FAERS Safety Report 6393586-1 (Version None)
Quarter: 2009Q4

REPORT INFORMATION
  Report Type: 
  Country: None (occurrence: None)
  Receive Date: 20091008
  Receipt Date: 20090928
  Transmission Date: 20100525
  Serious: Yes (Other)
  Sender: FDA-Public Use
  Company Number: US-JNJFOC-20091000653

PATIENT
  Sex: Male

DRUGS (2)
  1. TYLENOL (CAPLET) [Suspect]
     Route: 048
     Dates: start: 20090701
  2. TYLENOL (CAPLET) [Suspect]
     Indication: TEETHING
     Route: 048
     Dates: start: 20090701

REACTIONS (6)
  - ABDOMINAL DISCOMFORT [None]
  - EAR INFECTION [None]
  - INSOMNIA [None]
  - PYREXIA [None]
  - TRANSMISSION OF AN INFECTIOUS AGENT VIA A MEDICINAL PRODUCT [None]
  - UPPER RESPIRATORY TRACT INFECTION [None]
